FAERS Safety Report 24368385 (Version 2)
Quarter: 2024Q4

REPORT INFORMATION
  Report Type: Spontaneous
  Country: US (occurrence: US)
  Receive Date: 20240926
  Receipt Date: 20241007
  Transmission Date: 20250115
  Serious: No
  Sender: SANOFI AVENTIS
  Company Number: US-SA-2024SA275671

PATIENT
  Age: 8 Year
  Sex: Female

DRUGS (1)
  1. TZIELD [Suspect]
     Active Substance: TEPLIZUMAB-MZWV
     Indication: Diabetes prophylaxis
     Dosage: UNK
     Route: 065
     Dates: start: 20240909, end: 202409

REACTIONS (5)
  - Lymphocyte count abnormal [Recovering/Resolving]
  - Aspartate aminotransferase increased [Unknown]
  - Rash papular [Unknown]
  - Rash erythematous [Unknown]
  - Condition aggravated [Unknown]

NARRATIVE: CASE EVENT DATE: 20240913
